FAERS Safety Report 17073996 (Version 6)
Quarter: 2020Q1

REPORT INFORMATION
  Report Type: Other
  Country: DE (occurrence: DE)
  Receive Date: 20191126
  Receipt Date: 20200213
  Transmission Date: 20200409
  Serious: Yes (Hospitalization, Other)
  Sender: FDA-Public Use
  Company Number: DE-CELLTRION INC.-2019DE026720

PATIENT

DRUGS (147)
  1. KEVATRIL [Concomitant]
     Active Substance: GRANISETRON HYDROCHLORIDE
     Dosage: 1 MILLIGRAM
     Route: 042
     Dates: start: 20180405, end: 20180405
  2. KEVATRIL [Concomitant]
     Active Substance: GRANISETRON HYDROCHLORIDE
     Dosage: 3 MILLIGRAM
     Route: 042
     Dates: start: 20180704, end: 20180704
  3. PARACETAMOL [Concomitant]
     Active Substance: ACETAMINOPHEN
     Dosage: 1 GRAM
     Route: 048
     Dates: start: 20180703, end: 20180703
  4. BISOPROLOL [Concomitant]
     Active Substance: BISOPROLOL
     Indication: HYPERTENSION
     Dosage: 5 MILLIGRAM
     Route: 048
     Dates: start: 20180720
  5. RANITIDIN [Concomitant]
     Active Substance: RANITIDINE HYDROCHLORIDE
     Indication: PROPHYLAXIS
     Dosage: UNK
     Route: 042
     Dates: start: 20180403, end: 20180403
  6. RITUXIMAB (UNKNOWN) [Suspect]
     Active Substance: RITUXIMAB
     Dosage: 740 MG, (INFUSION RATE 4.2 ML/MIN FROM 07:30 TO 09:30)
     Route: 041
     Dates: start: 20180612, end: 20180612
  7. RITUXIMAB (UNKNOWN) [Suspect]
     Active Substance: RITUXIMAB
     Dosage: 740 MG, (INFUSION RATE 4.2 ML/MIN FROM 08:00 TO 10:00)
     Route: 041
     Dates: start: 20180522, end: 20180522
  8. CYCLOPHOSPHAMIDE. [Suspect]
     Active Substance: CYCLOPHOSPHAMIDE
     Dosage: 1480 MG, (INFUSION RATE 4.2 ML/MIN FROM 08:00 TO 10:00)
     Route: 042
     Dates: start: 20180613, end: 20180613
  9. PREDNISONE. [Suspect]
     Active Substance: PREDNISONE
     Dosage: 400 MILLIGRAM
     Route: 048
     Dates: start: 20180613, end: 20180616
  10. PREDNISONE. [Suspect]
     Active Substance: PREDNISONE
     Dosage: 500 MILLIGRAM
     Route: 048
     Dates: start: 20180313, end: 20180317
  11. PREDNISONE. [Suspect]
     Active Substance: PREDNISONE
     Dosage: 400 MILLIGRAM
     Route: 048
     Dates: start: 20180404, end: 20180407
  12. VINCRISTINE [Suspect]
     Active Substance: VINCRISTINE
     Dosage: 2 MILLIGRAM,(INFUSION RATE 2 ML/MIN FROM 07:55 TO 08:00)
     Route: 041
     Dates: start: 20180613, end: 20180613
  13. VINCRISTINE [Suspect]
     Active Substance: VINCRISTINE
     Dosage: 2 MILLIGRAM(INFUSION RATE 2 ML/MIN FROM 07:30 TO 07:35)
     Route: 041
     Dates: start: 20180404, end: 20180404
  14. VINCRISTINE [Suspect]
     Active Substance: VINCRISTINE
     Dosage: 2 MILLIGRAM,(INFUSION RATE 2 ML/MIN FROM 07:30 TO 07:35)
     Route: 041
     Dates: start: 20180503, end: 20180503
  15. DOXORUBICIN [Suspect]
     Active Substance: DOXORUBICIN
     Dosage: 99 MILLIGRAM (INFUSION RATE 8.4 ML/MIN FROM 10:00 TO 10:30)
     Route: 041
     Dates: start: 20180523, end: 20180523
  16. AMPHO MORONAL [Concomitant]
     Active Substance: AMPHOTERICIN B
     Dosage: UNK, BID
     Route: 048
     Dates: start: 20180312, end: 20180318
  17. AMPHO MORONAL [Concomitant]
     Active Substance: AMPHOTERICIN B
     Dosage: UNK, BID
     Route: 048
     Dates: start: 20180219, end: 20180226
  18. KEVATRIL [Concomitant]
     Active Substance: GRANISETRON HYDROCHLORIDE
     Dosage: 1 MILLIGRAM
     Route: 042
     Dates: start: 20180314, end: 20180314
  19. KEVATRIL [Concomitant]
     Active Substance: GRANISETRON HYDROCHLORIDE
     Dosage: 1 MILLIGRAM
     Route: 042
     Dates: start: 20180705, end: 20180705
  20. KEVATRIL [Concomitant]
     Active Substance: GRANISETRON HYDROCHLORIDE
     Dosage: 1 MILLIGRAM
     Route: 042
     Dates: start: 20180222, end: 20180405
  21. PARACETAMOL [Concomitant]
     Active Substance: ACETAMINOPHEN
     Dosage: 1 GRAM
     Route: 048
     Dates: start: 20180312, end: 20180312
  22. PARACETAMOL [Concomitant]
     Active Substance: ACETAMINOPHEN
     Dosage: 1 GRAM
     Route: 048
     Dates: start: 20180612, end: 20180612
  23. PARACETAMOL [Concomitant]
     Active Substance: ACETAMINOPHEN
     Dosage: 1 GRAM
     Route: 048
     Dates: start: 20180219, end: 20180403
  24. PANTOZOL [Concomitant]
     Active Substance: PANTOPRAZOLE SODIUM
     Indication: PROPHYLAXIS
     Dosage: 40 MG, UNK
     Route: 048
     Dates: start: 20180219
  25. PREDNISOLUT [PREDNISOLONE SODIUM SUCCINATE] [Concomitant]
     Indication: PROPHYLAXIS
     Dosage: 100 MILLIGRAM
     Route: 042
     Dates: start: 20180703, end: 20180703
  26. PREDNISOLUT [PREDNISOLONE SODIUM SUCCINATE] [Concomitant]
     Dosage: 100 MILLIGRAM
     Route: 042
     Dates: start: 20180612, end: 20180612
  27. PREDNISOLUT [PREDNISOLONE SODIUM SUCCINATE] [Concomitant]
     Dosage: 100 MILLIGRAM
     Route: 042
     Dates: start: 20180219, end: 20180219
  28. PREDNISOLUT [PREDNISOLONE SODIUM SUCCINATE] [Concomitant]
     Dosage: UNK
     Route: 048
     Dates: start: 20180213, end: 20180218
  29. PREDNISOLUT [PREDNISOLONE SODIUM SUCCINATE] [Concomitant]
     Dosage: 100 MILLIGRAM
     Route: 042
     Dates: start: 20180219, end: 20180403
  30. TAVEGIL [CLEMASTINE] [Concomitant]
     Active Substance: CLEMASTINE
     Dosage: 3 MG, UNK
     Route: 042
     Dates: start: 20180612, end: 20180612
  31. TAVEGIL [CLEMASTINE] [Concomitant]
     Active Substance: CLEMASTINE
     Dosage: 3 MILLIGRAM
     Route: 042
     Dates: start: 20180502, end: 20180502
  32. TAVEGIL [CLEMASTINE] [Concomitant]
     Active Substance: CLEMASTINE
     Dosage: 3 MILLIGRAM
     Route: 042
     Dates: start: 20180403, end: 20180403
  33. TAVEGIL [CLEMASTINE] [Concomitant]
     Active Substance: CLEMASTINE
     Dosage: 3 MILLIGRAM
     Route: 042
     Dates: start: 20180312, end: 20180312
  34. MESNEX [Concomitant]
     Active Substance: MESNA
     Dosage: 1200 MILLIGRAM
     Route: 042
     Dates: start: 20180613, end: 20180613
  35. NEULASTA [Suspect]
     Active Substance: PEGFILGRASTIM
     Indication: LEUKOPENIA
     Dosage: 6 MILLIGRAM
     Route: 058
     Dates: start: 20180327, end: 20180327
  36. PREDNISONE. [Suspect]
     Active Substance: PREDNISONE
     Dosage: 400 MILLIGRAM
     Route: 048
     Dates: start: 20180704, end: 20180707
  37. PREDNISONE. [Suspect]
     Active Substance: PREDNISONE
     Dosage: 500 MILLIGRAM
     Route: 048
     Dates: start: 20180221, end: 20180317
  38. VINCRISTINE [Suspect]
     Active Substance: VINCRISTINE
     Indication: DIFFUSE LARGE B-CELL LYMPHOMA
     Dosage: 2 MILLIGRAM
     Route: 041
     Dates: start: 20180808, end: 20180808
  39. VINCRISTINE [Suspect]
     Active Substance: VINCRISTINE
     Dosage: 2 MILLIGRAM,INFUSION RATE 2 ML/MIN FROM 07:55 TO 08:00)
     Route: 041
     Dates: start: 20180704, end: 20180704
  40. DOXORUBICIN [Suspect]
     Active Substance: DOXORUBICIN
     Indication: DIFFUSE LARGE B-CELL LYMPHOMA
     Dosage: 99 MILLIGRAM(INFUSION RATE 8.3 ML/MIN FROM 10:00 TO 10:30)
     Route: 041
     Dates: start: 20180704, end: 20180704
  41. AMPHO MORONAL [Concomitant]
     Active Substance: AMPHOTERICIN B
     Dosage: UNK, BID
     Route: 048
     Dates: start: 20180703, end: 20180709
  42. AMPHO MORONAL [Concomitant]
     Active Substance: AMPHOTERICIN B
     Dosage: UNK
     Route: 048
     Dates: start: 20180213, end: 20180409
  43. MESNA. [Concomitant]
     Active Substance: MESNA
     Dosage: 1200 MG, UNK
     Route: 042
     Dates: start: 20180808, end: 20180808
  44. MESNA. [Concomitant]
     Active Substance: MESNA
     Dosage: 1200 MILLIGRAM
     Route: 042
     Dates: start: 20180221, end: 20180404
  45. KEVATRIL [Concomitant]
     Active Substance: GRANISETRON HYDROCHLORIDE
     Dosage: 3 MG, UNK
     Route: 042
     Dates: start: 20180221, end: 20180221
  46. PARACETAMOL [Concomitant]
     Active Substance: ACETAMINOPHEN
     Dosage: 1 G, UNK
     Route: 048
     Dates: start: 20180219, end: 20180219
  47. PREDNISOLUT [PREDNISOLONE SODIUM SUCCINATE] [Concomitant]
     Dosage: 100 MG, UNK
     Route: 042
     Dates: start: 20180220, end: 20180220
  48. TAVEGIL [CLEMASTINE] [Concomitant]
     Active Substance: CLEMASTINE
     Dosage: 3 MILLIGRAM
     Route: 042
     Dates: start: 20180522, end: 20180522
  49. RANITIDIN [Concomitant]
     Active Substance: RANITIDINE HYDROCHLORIDE
     Dosage: UNK
     Route: 042
     Dates: start: 20180219, end: 20180219
  50. RANITIDIN [Concomitant]
     Active Substance: RANITIDINE HYDROCHLORIDE
     Dosage: UNK
     Route: 042
     Dates: start: 20180612, end: 20180612
  51. RANITIDIN [Concomitant]
     Active Substance: RANITIDINE HYDROCHLORIDE
     Dosage: UNK
     Route: 042
     Dates: start: 20180502, end: 20180502
  52. MESNEX [Concomitant]
     Active Substance: MESNA
     Dosage: 1200 MILLIGRAM
     Route: 042
     Dates: start: 20180313, end: 20180313
  53. MESNEX [Concomitant]
     Active Substance: MESNA
     Dosage: 1200 MILLIGRAM
     Route: 042
     Dates: start: 20180523, end: 20180523
  54. RITUXIMAB (UNKNOWN) [Suspect]
     Active Substance: RITUXIMAB
     Dosage: 740 MILLIGRAM,(INFUSION RATE 1.7 ML/MIN FROM 07:30 TO 11:30)
     Route: 041
     Dates: start: 20180219, end: 20180219
  55. RITUXIMAB (UNKNOWN) [Suspect]
     Active Substance: RITUXIMAB
     Dosage: 740 MILLIGRAM, QD
     Route: 041
     Dates: start: 20180703, end: 20180703
  56. NEULASTA [Suspect]
     Active Substance: PEGFILGRASTIM
     Dosage: 6 MILLIGRAM
     Route: 058
     Dates: start: 20180706, end: 20180706
  57. NEULASTA [Suspect]
     Active Substance: PEGFILGRASTIM
     Dosage: 6 MILLIGRAM
     Route: 058
     Dates: start: 20180810, end: 20180810
  58. CYCLOPHOSPHAMIDE. [Suspect]
     Active Substance: CYCLOPHOSPHAMIDE
     Dosage: 1480 MILLIGRAM,(INFUSION RATE 8.3 ML/MIN FROM 07:35 TO 09:35)
     Route: 042
     Dates: start: 20180404, end: 20180404
  59. CYCLOPHOSPHAMIDE. [Suspect]
     Active Substance: CYCLOPHOSPHAMIDE
     Dosage: 1480 MILLIGRAM,(INFUSION RATE 4.17 ML/MIN FROM 07:35 TO 09:35
     Route: 042
     Dates: start: 20180313, end: 20180313
  60. PREDNISONE. [Suspect]
     Active Substance: PREDNISONE
     Dosage: 400 MILLIGRAM
     Route: 048
     Dates: start: 20180523, end: 20180526
  61. MESNA. [Concomitant]
     Active Substance: MESNA
     Dosage: 1200 MG, UNK
     Route: 042
     Dates: start: 20180503, end: 20180503
  62. MESNA. [Concomitant]
     Active Substance: MESNA
     Dosage: 1200 MG, UNK
     Route: 042
     Dates: start: 20180404, end: 20180404
  63. MESNA. [Concomitant]
     Active Substance: MESNA
     Dosage: 1200 MG, UNK
     Route: 042
     Dates: start: 20180613, end: 20180613
  64. KEVATRIL [Concomitant]
     Active Substance: GRANISETRON HYDROCHLORIDE
     Indication: PROPHYLAXIS
     Dosage: 3 MG, UNK
     Route: 042
     Dates: start: 20180503, end: 20180503
  65. KEVATRIL [Concomitant]
     Active Substance: GRANISETRON HYDROCHLORIDE
     Dosage: 3 MILLIGRAM
     Route: 042
     Dates: start: 20180523, end: 20180523
  66. KEVATRIL [Concomitant]
     Active Substance: GRANISETRON HYDROCHLORIDE
     Dosage: 1 MG, UNK
     Route: 042
     Dates: start: 20180222, end: 20180222
  67. KEVATRIL [Concomitant]
     Active Substance: GRANISETRON HYDROCHLORIDE
     Dosage: 1 MILLIGRAM
     Route: 042
     Dates: start: 20180808, end: 20180808
  68. KEVATRIL [Concomitant]
     Active Substance: GRANISETRON HYDROCHLORIDE
     Dosage: 3 MG, UNK
     Route: 042
     Dates: start: 20180613, end: 20180613
  69. PARACETAMOL [Concomitant]
     Active Substance: ACETAMINOPHEN
     Dosage: 1 GRAM
     Route: 048
     Dates: start: 20180220, end: 20180220
  70. PARACETAMOL [Concomitant]
     Active Substance: ACETAMINOPHEN
     Dosage: 1 GRAM
     Route: 048
     Dates: start: 20180502, end: 20180502
  71. ALLOPURINOL. [Concomitant]
     Active Substance: ALLOPURINOL
     Indication: PROPHYLAXIS
     Dosage: 300 MILLIGRAM
     Route: 048
     Dates: start: 20180213, end: 20180311
  72. SILAPO [Concomitant]
     Indication: PRODUCT USED FOR UNKNOWN INDICATION
     Dosage: 20.000 IE, QWK
     Route: 058
     Dates: start: 20180503
  73. PREDNISOLUT [PREDNISOLONE SODIUM SUCCINATE] [Concomitant]
     Dosage: 100 MILLIGRAM
     Route: 042
     Dates: start: 20180807, end: 20180807
  74. TAVEGIL [CLEMASTINE] [Concomitant]
     Active Substance: CLEMASTINE
     Dosage: 2 UNK
     Route: 042
     Dates: start: 20180807, end: 20180807
  75. RANITIDIN [Concomitant]
     Active Substance: RANITIDINE HYDROCHLORIDE
     Dosage: UNK
     Route: 042
     Dates: start: 20180312, end: 20180312
  76. RANITIDIN [Concomitant]
     Active Substance: RANITIDINE HYDROCHLORIDE
     Dosage: UNK
     Route: 042
     Dates: start: 20180522, end: 20180522
  77. MESNEX [Concomitant]
     Active Substance: MESNA
     Dosage: 1200 MILLIGRAM
     Route: 042
     Dates: start: 20180221, end: 20180404
  78. RITUXIMAB (UNKNOWN) [Suspect]
     Active Substance: RITUXIMAB
     Indication: DIFFUSE LARGE B-CELL LYMPHOMA
     Dosage: 740 MILLIGRAM(INFUSION RATE 4.2 ML/MIN FROM 07:30 TO 09:30)
     Route: 041
     Dates: start: 20180612, end: 20180612
  79. RITUXIMAB (UNKNOWN) [Suspect]
     Active Substance: RITUXIMAB
     Dosage: 740 MILLIGRAM,(INFUSION RATE 4.17 ML/MIN FROM 07:30 TO 09:30)
     Route: 041
     Dates: start: 20180502, end: 20180502
  80. RITUXIMAB (UNKNOWN) [Suspect]
     Active Substance: RITUXIMAB
     Dosage: 740 MILLIGRAM (INFUSION RATE 8.3 ML/MIN FROM 07:30 TO 09:30)
     Route: 041
     Dates: start: 20180403, end: 20180403
  81. NEULASTA [Suspect]
     Active Substance: PEGFILGRASTIM
     Dosage: 6 MILLIGRAM
     Route: 058
     Dates: start: 20180514, end: 20180514
  82. NEULASTA [Suspect]
     Active Substance: PEGFILGRASTIM
     Dosage: 6 MILLIGRAM
     Route: 058
     Dates: start: 20180505, end: 20180505
  83. CYCLOPHOSPHAMIDE. [Suspect]
     Active Substance: CYCLOPHOSPHAMIDE
     Dosage: 1480 MILLIGRAM,(INFUSION RATE 4.2 ML/MIN FROM 08:00 TO 10:00)
     Route: 042
     Dates: start: 20180523, end: 20180523
  84. DOXORUBICIN [Suspect]
     Active Substance: DOXORUBICIN
     Dosage: 99 MILLIGRAM(INFUSION RATE 8.3 ML/MIN FROM 10:00 TO 10:30)
     Route: 041
     Dates: start: 20180613, end: 20180613
  85. DOXORUBICIN [Suspect]
     Active Substance: DOXORUBICIN
     Dosage: 99 MILLIGRAM (INFUSION RATE 8.3 ML/MIN FROM 09:35 TO 10:05)
     Route: 041
     Dates: start: 20180503, end: 20180503
  86. DOXORUBICIN [Suspect]
     Active Substance: DOXORUBICIN
     Dosage: 99 MILLIGRAM (INFUSION RATE 8.3 ML/MIN FROM 10:35 TO 11:05)
     Route: 041
     Dates: start: 20180221, end: 20180404
  87. KEVATRIL [Concomitant]
     Active Substance: GRANISETRON HYDROCHLORIDE
     Dosage: 1 MILLIGRAM
     Route: 042
     Dates: start: 20180614, end: 20180614
  88. KEVATRIL [Concomitant]
     Active Substance: GRANISETRON HYDROCHLORIDE
     Dosage: 1 MILLIGRAM
     Route: 042
     Dates: start: 20180524, end: 20180524
  89. BISOPROLOL [Concomitant]
     Active Substance: BISOPROLOL
     Dosage: 2.5 MILLIGRAM
     Route: 048
     Dates: start: 20170830, end: 20180719
  90. SALBUTAMOL [Concomitant]
     Active Substance: ALBUTEROL
     Indication: ASTHMA
     Dosage: UNK, AS NECESSARY
     Route: 048
     Dates: start: 201711
  91. TAVEGIL [CLEMASTINE] [Concomitant]
     Active Substance: CLEMASTINE
     Dosage: 3 MILLIGRAM
     Route: 042
     Dates: start: 20180219, end: 20180219
  92. RANITIDIN [Concomitant]
     Active Substance: RANITIDINE HYDROCHLORIDE
     Dosage: UNK
     Route: 042
     Dates: start: 20180220, end: 20180220
  93. RANITIDIN [Concomitant]
     Active Substance: RANITIDINE HYDROCHLORIDE
     Dosage: 2 MILLIGRAM
     Route: 042
     Dates: start: 20180807, end: 20180807
  94. RANITIDIN [Concomitant]
     Active Substance: RANITIDINE HYDROCHLORIDE
     Dosage: UNK
     Route: 042
     Dates: start: 20180219, end: 20180413
  95. MESNEX [Concomitant]
     Active Substance: MESNA
     Dosage: 1200 MILLIGRAM
     Route: 042
     Dates: start: 20180404, end: 20180404
  96. RITUXIMAB (UNKNOWN) [Suspect]
     Active Substance: RITUXIMAB
     Dosage: 740 MILLIGRAM,(INFUSION RATE 4.2 ML/MIN FROM 08:00 TO 10:00)
     Route: 041
     Dates: start: 20180522, end: 20180522
  97. CYCLOPHOSPHAMIDE. [Suspect]
     Active Substance: CYCLOPHOSPHAMIDE
     Dosage: 1480 MILLIGRAM
     Route: 041
     Dates: start: 20180808, end: 20180808
  98. PREDNISONE. [Suspect]
     Active Substance: PREDNISONE
     Indication: DIFFUSE LARGE B-CELL LYMPHOMA
     Dosage: 400 MILLIGRAM
     Route: 048
     Dates: start: 20180503, end: 20180506
  99. PREDNISONE. [Suspect]
     Active Substance: PREDNISONE
     Dosage: 500 MG, UNK
     Route: 048
     Dates: start: 20180221, end: 20180225
  100. DOXORUBICIN [Suspect]
     Active Substance: DOXORUBICIN
     Dosage: 99 MILLIGRAM(INFUSION RATE 8.3 ML/MIN FROM 09:35 TO 10:05)
     Route: 041
     Dates: start: 20180404, end: 20180404
  101. AMPHO MORONAL [Concomitant]
     Active Substance: AMPHOTERICIN B
     Indication: PROPHYLAXIS
     Dosage: UNK, BID
     Route: 048
     Dates: start: 20180522, end: 20180528
  102. KEVATRIL [Concomitant]
     Active Substance: GRANISETRON HYDROCHLORIDE
     Dosage: UNK
     Route: 048
     Dates: start: 20180213, end: 20180213
  103. PARACETAMOL [Concomitant]
     Active Substance: ACETAMINOPHEN
     Dosage: 1 GRAM
     Route: 048
     Dates: start: 20180522, end: 20180522
  104. ALLOPURINOL. [Concomitant]
     Active Substance: ALLOPURINOL
     Dosage: 300 MILLIGRAM
     Route: 048
     Dates: start: 20180313
  105. PREDNISOLUT [PREDNISOLONE SODIUM SUCCINATE] [Concomitant]
     Dosage: 100 MILLIGRAM
     Route: 042
     Dates: start: 20180403, end: 20180403
  106. TAVEGIL [CLEMASTINE] [Concomitant]
     Active Substance: CLEMASTINE
     Dosage: 3 MILLIGRAM
     Route: 042
     Dates: start: 20180220, end: 20180220
  107. RANITIDIN [Concomitant]
     Active Substance: RANITIDINE HYDROCHLORIDE
     Dosage: UNK
     Route: 042
     Dates: start: 20180703, end: 20180703
  108. MESNEX [Concomitant]
     Active Substance: MESNA
     Dosage: 1200 MILLIGRAM
     Route: 042
     Dates: start: 20180808, end: 20180808
  109. NEULASTA [Suspect]
     Active Substance: PEGFILGRASTIM
     Dosage: 6 MILLIGRAM
     Route: 058
     Dates: start: 20180615, end: 20180615
  110. CYCLOPHOSPHAMIDE. [Suspect]
     Active Substance: CYCLOPHOSPHAMIDE
     Indication: DIFFUSE LARGE B-CELL LYMPHOMA
     Dosage: 1480 MILLIGRAM, (INFUSION RATE 4.2 ML/MIN FROM 08:00 TO 10:00)
     Route: 041
     Dates: start: 20180704, end: 20180704
  111. VINCRISTINE [Suspect]
     Active Substance: VINCRISTINE
     Dosage: 2 MILLIGRAMINFUSION RATE 2 ML/MIN FROM 07:30 TO 07:35)
     Route: 041
     Dates: start: 20180313, end: 20180313
  112. VINCRISTINE [Suspect]
     Active Substance: VINCRISTINE
     Dosage: 2 MILLIGRAM,INFUSION RATE 2 ML/MIN FROM 07:30 TO 07:35)
     Route: 041
     Dates: start: 20180221, end: 20180221
  113. DOXORUBICIN [Suspect]
     Active Substance: DOXORUBICIN
     Dosage: 99 MG, (INFUSION RATE 8.3 ML/MIN FROM 10:35 TO 11:05)
     Route: 041
     Dates: start: 20180808, end: 20180808
  114. AMPHO MORONAL [Concomitant]
     Active Substance: AMPHOTERICIN B
     Dosage: UNK, BID
     Route: 048
     Dates: start: 20180612, end: 20180618
  115. AMPHO MORONAL [Concomitant]
     Active Substance: AMPHOTERICIN B
     Dosage: UNK, BID
     Route: 042
     Dates: start: 20180403, end: 20180409
  116. AMPHO MORONAL [Concomitant]
     Active Substance: AMPHOTERICIN B
     Dosage: UNK, BID
     Route: 048
     Dates: start: 20180807, end: 20180813
  117. COTRIM [Concomitant]
     Active Substance: SULFAMETHOXAZOLE\TRIMETHOPRIM
     Indication: PROPHYLAXIS
     Dosage: UNK (3 DAYS WEEKLY)
     Route: 048
     Dates: start: 20180219
  118. MESNA. [Concomitant]
     Active Substance: MESNA
     Indication: PROPHYLAXIS
     Dosage: 1200 MG, UNK
     Route: 042
     Dates: start: 20180313, end: 20180313
  119. KEVATRIL [Concomitant]
     Active Substance: GRANISETRON HYDROCHLORIDE
     Dosage: 1 MILLIGRAM
     Route: 042
     Dates: start: 20180504, end: 20180504
  120. KEVATRIL [Concomitant]
     Active Substance: GRANISETRON HYDROCHLORIDE
     Dosage: 3 MILLIGRAM
     Route: 042
     Dates: start: 20180221, end: 20180404
  121. PREDNISOLUT [PREDNISOLONE SODIUM SUCCINATE] [Concomitant]
     Dosage: 100 MILLIGRAM
     Route: 042
     Dates: start: 20180502, end: 20180502
  122. PREDNISOLUT [PREDNISOLONE SODIUM SUCCINATE] [Concomitant]
     Dosage: 100 MILLIGRAM
     Route: 042
     Dates: start: 20180522, end: 20180522
  123. ACIC [ACICLOVIR] [Concomitant]
     Active Substance: ACYCLOVIR
     Indication: PROPHYLAXIS
     Dosage: 800 MILLIGRAM
     Route: 048
     Dates: start: 20180219
  124. RITUXIMAB (UNKNOWN) [Suspect]
     Active Substance: RITUXIMAB
     Dosage: 600 MILLIGRAM,(INFUSION RATE 2.78 ML/MIN FROM 07:30 TO 10:30)
     Route: 041
     Dates: start: 20180312, end: 20180312
  125. RITUXIMAB (UNKNOWN) [Suspect]
     Active Substance: RITUXIMAB
     Dosage: 740 MILLIGRAM
     Route: 041
     Dates: start: 20180807, end: 20180807
  126. VINCRISTINE [Suspect]
     Active Substance: VINCRISTINE
     Dosage: 2 MILLIGRAM
     Route: 041
     Dates: start: 20180213, end: 20180404
  127. DOXORUBICIN [Suspect]
     Active Substance: DOXORUBICIN
     Dosage: 99 MILLIGRAM, (INFUSION RATE 8.3 ML/MIN FROM 09:35 TO 10:05)
     Route: 041
     Dates: start: 20180313, end: 20180313
  128. DOXORUBICIN [Suspect]
     Active Substance: DOXORUBICIN
     Dosage: 99 MG, (INFUSION RATE 8.3 ML/MIN FROM 10:35 TO 11:05)
     Route: 041
     Dates: start: 20180221, end: 20180221
  129. MESNA. [Concomitant]
     Active Substance: MESNA
     Dosage: 1200 MG, UNK
     Route: 042
     Dates: start: 20180704, end: 20180704
  130. KEVATRIL [Concomitant]
     Active Substance: GRANISETRON HYDROCHLORIDE
     Dosage: 3 MILLIGRAM
     Route: 042
     Dates: start: 20180404, end: 20180404
  131. PARACETAMOL [Concomitant]
     Active Substance: ACETAMINOPHEN
     Indication: PROPHYLAXIS
     Dosage: 1 GRAM
     Route: 048
     Dates: start: 20180403, end: 20180403
  132. PARACETAMOL [Concomitant]
     Active Substance: ACETAMINOPHEN
     Dosage: 1 GRAM
     Route: 042
     Dates: start: 20180807, end: 20180807
  133. PREDNISOLUT [PREDNISOLONE SODIUM SUCCINATE] [Concomitant]
     Dosage: 100 MILLIGRAM
     Route: 042
     Dates: start: 20180312, end: 20180312
  134. TAVEGIL [CLEMASTINE] [Concomitant]
     Active Substance: CLEMASTINE
     Indication: PROPHYLAXIS
     Dosage: UNK
     Route: 042
     Dates: start: 20180703, end: 20180703
  135. MESNEX [Concomitant]
     Active Substance: MESNA
     Dosage: 1200 MILLIGRAM
     Route: 042
     Dates: start: 20180503, end: 20180503
  136. MESNEX [Concomitant]
     Active Substance: MESNA
     Dosage: 1200 MILLIGRAM
     Route: 042
     Dates: start: 20180704, end: 20180704
  137. RITUXIMAB (UNKNOWN) [Suspect]
     Active Substance: RITUXIMAB
     Dosage: 740 MG, (INFUSION RATE 4.17 ML/MIN FROM 07:30 TO 09:30)
     Route: 041
     Dates: start: 20180502, end: 20180502
  138. NEULASTA [Suspect]
     Active Substance: PEGFILGRASTIM
     Indication: PROPHYLAXIS
     Dosage: 6 MILLIGRAM
     Route: 058
     Dates: start: 20180525, end: 20180525
  139. CYCLOPHOSPHAMIDE. [Suspect]
     Active Substance: CYCLOPHOSPHAMIDE
     Dosage: 1480 MILLIGRAM,(INFUSION RATE 8.1 ML/MIN FROM 07:35 TO 10:35)
     Route: 041
     Dates: start: 20180221, end: 20180221
  140. CYCLOPHOSPHAMIDE. [Suspect]
     Active Substance: CYCLOPHOSPHAMIDE
     Dosage: 1480 MILLIGRAM,(INFUSION RATE 4.17 ML/MIN FROM 07:35 TO 09:35)
     Route: 042
     Dates: start: 20180503, end: 20180503
  141. PREDNISONE. [Suspect]
     Active Substance: PREDNISONE
     Dosage: 400 MILLIGRAM
     Route: 048
     Dates: start: 20180808, end: 20180811
  142. VINCRISTINE [Suspect]
     Active Substance: VINCRISTINE
     Dosage: 2 MILLIGRAM, (INFUSION RATE 2 ML/MIN FROM 07:55 TO 08:00)
     Route: 041
     Dates: start: 20180523, end: 20180523
  143. AMPHO MORONAL [Concomitant]
     Active Substance: AMPHOTERICIN B
     Dosage: UNK, BID
     Route: 048
     Dates: start: 20180502, end: 20180509
  144. MESNA. [Concomitant]
     Active Substance: MESNA
     Dosage: 1200 MG, UNK
     Route: 042
     Dates: start: 20180523, end: 20180523
  145. MESNA. [Concomitant]
     Active Substance: MESNA
     Dosage: 1200 MG, UNK
     Route: 042
     Dates: start: 20180221, end: 20180221
  146. KEVATRIL [Concomitant]
     Active Substance: GRANISETRON HYDROCHLORIDE
     Dosage: 3 MILLIGRAM
     Route: 042
     Dates: start: 20180808, end: 20180808
  147. KEVATRIL [Concomitant]
     Active Substance: GRANISETRON HYDROCHLORIDE
     Dosage: 3 MILLIGRAM
     Route: 042
     Dates: start: 20180313, end: 20180313

REACTIONS (27)
  - Product use in unapproved indication [Unknown]
  - Fibrin D dimer increased [Unknown]
  - Pain [Recovered/Resolved]
  - Drug therapeutic incompatibility [Recovered/Resolved]
  - Neutropenia [Not Recovered/Not Resolved]
  - Lymphoedema [Recovered/Resolved]
  - Leukopenia [Recovered/Resolved]
  - Deep vein thrombosis [Recovered/Resolved]
  - Vitamin D deficiency [Not Recovered/Not Resolved]
  - Overdose [Unknown]
  - Underdose [Unknown]
  - C-reactive protein increased [Recovered/Resolved]
  - Oedema peripheral [Recovered/Resolved]
  - Asthma [Recovered/Resolved]
  - Vitamin D decreased [Not Recovered/Not Resolved]
  - Pulpitis dental [Recovered/Resolved]
  - Chest pain [Unknown]
  - Chills [Unknown]
  - Polyneuropathy [Not Recovered/Not Resolved]
  - Nausea [Recovered/Resolved]
  - Anaemia [Not Recovered/Not Resolved]
  - Neutropenic sepsis [Recovered/Resolved]
  - C-reactive protein increased [Recovered/Resolved]
  - Pyrexia [Unknown]
  - Dizziness [Recovered/Resolved]
  - Off label use [Unknown]
  - C-reactive protein increased [Recovered/Resolved]

NARRATIVE: CASE EVENT DATE: 2018
